FAERS Safety Report 5118803-7 (Version None)
Quarter: 2006Q4

REPORT INFORMATION
  Report Type: 
  Country: None (occurrence: None)
  Receive Date: 20061002
  Receipt Date: 20060410
  Transmission Date: 20070319
  Serious: Yes (Hospitalization)
  Sender: FDA-Public Use
  Company Number: TW-BRISTOL-MYERS SQUIBB COMPANY-13341276

PATIENT
  Age: 45 Year
  Sex: Female

DRUGS (2)
  1. ORENCIA [Suspect]
     Indication: RHEUMATOID ARTHRITIS
     Route: 042
     Dates: start: 20040510
  2. METHOTREXATE [Suspect]
     Route: 048
     Dates: start: 20010314

REACTIONS (2)
  - ESCHERICHIA SEPSIS [None]
  - PYELONEPHRITIS ACUTE [None]
